FAERS Safety Report 7582529-0 (Version None)
Quarter: 2011Q2

REPORT INFORMATION
  Report Type: 
  Country: None (occurrence: None)
  Receive Date: 20110630
  Receipt Date: 20110624
  Transmission Date: 20111010
  Serious: Yes (Other)
  Sender: FDA-Public Use
  Company Number: US-PFIZER INC-2011142189

PATIENT

DRUGS (1)
  1. NEURONTIN [Suspect]

REACTIONS (2)
  - CYSTITIS INTERSTITIAL [None]
  - DRUG INEFFECTIVE [None]
